FAERS Safety Report 22073736 (Version 2)
Quarter: 2023Q2

REPORT INFORMATION
  Report Type: Other
  Country: IN (occurrence: None)
  Receive Date: 20230308
  Receipt Date: 20230413
  Transmission Date: 20230721
  Serious: Yes (Other)
  Sender: FDA-Public Use
  Company Number: IN-ROCHE-3248861

PATIENT
  Age: 49 Year
  Sex: Female

DRUGS (2)
  1. PERJETA [Suspect]
     Active Substance: PERTUZUMAB
     Indication: Breast cancer metastatic
     Route: 042
  2. KADCYLA [Suspect]
     Active Substance: ADO-TRASTUZUMAB EMTANSINE
     Indication: Breast cancer metastatic
     Dosage: ON 06-APRIL-2020  LAST INFUSION WAS RECEIVED
     Route: 042
     Dates: end: 20200406

REACTIONS (3)
  - Off label use [Unknown]
  - Pneumonia [Unknown]
  - Neoplasm progression [Unknown]
